FAERS Safety Report 8355569-1 (Version None)
Quarter: 2012Q2

REPORT INFORMATION
  Report Type: 
  Country: None (occurrence: None)
  Receive Date: 20120513
  Receipt Date: 20120502
  Transmission Date: 20120825
  Serious: Yes (Other)
  Sender: FDA-Public Use
  Company Number: US-ELI_LILLY_AND_COMPANY-US201111007561

PATIENT
  Sex: Female

DRUGS (5)
  1. FORTEO [Suspect]
     Dosage: 20 UG, QD
     Dates: end: 20110401
  2. FORTEO [Suspect]
     Indication: OSTEOPOROSIS
     Dosage: 20 UG, QD
     Dates: start: 20111111
  3. COUMADIN [Concomitant]
     Dosage: 3 MG, UNK
  4. CALCIUM [Concomitant]
  5. STOOL SOFTENER [Concomitant]
     Indication: CONSTIPATION
     Dosage: UNK

REACTIONS (17)
  - BLOOD TEST ABNORMAL [None]
  - MUSCULOSKELETAL DISORDER [None]
  - INJECTION SITE HAEMORRHAGE [None]
  - DYSSTASIA [None]
  - HEARING IMPAIRED [None]
  - BACK PAIN [None]
  - ASTHENIA [None]
  - OEDEMA PERIPHERAL [None]
  - NEOPLASM PROGRESSION [None]
  - CHONDROPATHY [None]
  - CHOKING [None]
  - PAIN IN EXTREMITY [None]
  - DECREASED APPETITE [None]
  - ARTHRALGIA [None]
  - NAUSEA [None]
  - FEELING ABNORMAL [None]
  - INJECTION SITE HAEMATOMA [None]
